FAERS Safety Report 8185194-7 (Version None)
Quarter: 2012Q1

REPORT INFORMATION
  Report Type: 
  Country: None (occurrence: None)
  Receive Date: 20120305
  Receipt Date: 20120301
  Transmission Date: 20120608
  Serious: Yes (Death)
  Sender: FDA-Public Use
  Company Number: TN-ROCHE-1044720

PATIENT
  Sex: Male
  Weight: 58 kg

DRUGS (2)
  1. COPEGUS [Suspect]
     Indication: HEPATITIS C
     Route: 048
     Dates: start: 20100428, end: 20100722
  2. PEGINTERFERON ALFA-2A [Suspect]
     Indication: HEPATITIS C
     Route: 058
     Dates: start: 20100428, end: 20100722

REACTIONS (2)
  - HEPATIC CYST RUPTURED [None]
  - HEPATIC ECHINOCOCCIASIS [None]
